FAERS Safety Report 9366171 (Version 1)
Quarter: 2013Q4

REPORT INFORMATION
  Report Type: Spontaneous
  Country: AU (occurrence: None)
  Receive Date: 20130619
  Receipt Date: 20130619
  Transmission Date: 20140711
  Serious: Yes (Hospitalization)
  Sender: FDA-Public Use
  Company Number: 2013AP006158

PATIENT
  Sex: Male

DRUGS (1)
  1. AMIODARONE (AMIODARONE) [Suspect]

REACTIONS (2)
  - Toxicity to various agents [None]
  - Drug dispensing error [None]
